FAERS Safety Report 10459186 (Version 3)
Quarter: 2014Q4

REPORT INFORMATION
  Report Type: Spontaneous
  Country: JP (occurrence: JP)
  Receive Date: 20140917
  Receipt Date: 20141024
  Transmission Date: 20150528
  Serious: Yes (Hospitalization)
  Sender: FDA-Public Use
  Company Number: PHHY2014JP116349

PATIENT
  Age: 82 Year
  Sex: Female

DRUGS (2)
  1. EXELON PATCH [Suspect]
     Active Substance: RIVASTIGMINE
     Indication: DEMENTIA ALZHEIMER^S TYPE
     Dosage: 9.5 MG/24 HOURS (18 MG, DAILY)
     Route: 062
  2. NEUPRO [Concomitant]
     Active Substance: ROTIGOTINE
     Indication: PRODUCT USED FOR UNKNOWN INDICATION
     Dosage: 2.25 MG, UNK
     Route: 062

REACTIONS (6)
  - Wrong technique in drug usage process [Unknown]
  - Pruritus [Unknown]
  - Lumbar vertebral fracture [Recovered/Resolved]
  - Dermatitis contact [Recovered/Resolved]
  - Application site rash [Unknown]
  - Application site erythema [Unknown]

NARRATIVE: CASE EVENT DATE: 201406
